FAERS Safety Report 14477169 (Version 1)
Quarter: 2018Q1

REPORT INFORMATION
  Report Type: Report from Study
  Country: US (occurrence: US)
  Receive Date: 20180201
  Receipt Date: 20180201
  Transmission Date: 20180509
  Serious: No
  Sender: FDA-Public Use
  Company Number: US-EXELIXIS-CABO-17010955

PATIENT
  Age: 74 Year
  Sex: Male

DRUGS (8)
  1. IBUPROFEN. [Concomitant]
     Active Substance: IBUPROFEN
  2. ALFUZOSIN [Concomitant]
     Active Substance: ALFUZOSIN
  3. CABOMETYX [Suspect]
     Active Substance: CABOZANTINIB S-MALATE
     Indication: RENAL CANCER
     Dosage: 60 MG, QD
     Route: 048
     Dates: start: 20171006
  4. GABAPENTIN. [Concomitant]
     Active Substance: GABAPENTIN
  5. AMLODIPINE [Concomitant]
     Active Substance: AMLODIPINE BESYLATE
  6. MELATONIN [Concomitant]
     Active Substance: MELATONIN
  7. METOPROLOL. [Concomitant]
     Active Substance: METOPROLOL
  8. ACETAMIN [Concomitant]
     Active Substance: ACETAMINOPHEN

REACTIONS (2)
  - Eating disorder [Unknown]
  - Malaise [Unknown]

NARRATIVE: CASE EVENT DATE: 201710
